FAERS Safety Report 5522208-4 (Version None)
Quarter: 2007Q4

REPORT INFORMATION
  Report Type: 
  Country: None (occurrence: None)
  Receive Date: 20071120
  Receipt Date: 20071119
  Transmission Date: 20080405
  Serious: Yes (Life-Threatening)
  Sender: FDA-Public Use
  Company Number: B0496063A

PATIENT
  Age: 65 Year
  Sex: Male

DRUGS (12)
  1. ARTIST [Suspect]
     Route: 048
     Dates: start: 20071011
  2. OMNIPAQUE 300 [Suspect]
     Dosage: 2ML PER DAY
     Route: 014
     Dates: start: 20071016, end: 20071016
  3. CALBLOCK [Concomitant]
     Dates: start: 20071014
  4. PROCAINE HYDROCHLORIDE INJ [Concomitant]
     Dates: start: 20071016, end: 20071016
  5. LASIX [Concomitant]
     Dates: start: 20071005
  6. ASPIRIN [Concomitant]
     Dates: start: 20071005
  7. DIOVAN [Concomitant]
     Dates: start: 20071005
  8. TAKEPRON [Concomitant]
     Dates: start: 20071005
  9. ALDACTONE [Concomitant]
     Dates: start: 20071009
  10. CERCINE [Concomitant]
     Dates: start: 20071016, end: 20071016
  11. ISOSORBIDE DINITRATE [Concomitant]
     Dates: start: 20071016, end: 20071016
  12. HEPARIN [Concomitant]
     Dates: start: 20071016

REACTIONS (3)
  - ANAPHYLACTIC SHOCK [None]
  - DEPRESSED LEVEL OF CONSCIOUSNESS [None]
  - RASH [None]
